FAERS Safety Report 8152621-0 (Version None)
Quarter: 2012Q1

REPORT INFORMATION
  Report Type: 
  Country: None (occurrence: None)
  Receive Date: 20120221
  Receipt Date: 20120213
  Transmission Date: 20120608
  Serious: Yes (Hospitalization, Other)
  Sender: FDA-Public Use
  Company Number: JP-JNJFOC-20120111629

PATIENT
  Sex: Female
  Weight: 45 kg

DRUGS (7)
  1. GLIMICRON [Concomitant]
     Indication: DIABETES MELLITUS
     Route: 048
  2. NIKORANMART [Concomitant]
     Indication: ANGINA PECTORIS
     Route: 048
  3. OVULANZE [Concomitant]
     Indication: GASTROOESOPHAGEAL REFLUX DISEASE
     Route: 048
  4. ROCORNAL [Concomitant]
     Indication: ANGINA PECTORIS
     Route: 048
  5. MOBIC [Concomitant]
     Indication: RHEUMATOID ARTHRITIS
     Dosage: AS NECESSARY
     Route: 048
  6. GALANTAMINE HYDROBROMIDE [Suspect]
     Indication: DEMENTIA ALZHEIMER'S TYPE
     Route: 048
     Dates: start: 20110805, end: 20120111
  7. PREDNISOLONE [Concomitant]
     Indication: RHEUMATOID ARTHRITIS
     Dosage: AS NECESSARY
     Route: 048

REACTIONS (2)
  - MEDIASTINUM NEOPLASM [None]
  - DECREASED APPETITE [None]
